FAERS Safety Report 17346211 (Version 1)
Quarter: 2020Q1

REPORT INFORMATION
  Report Type: Report from Study
  Country: US (occurrence: US)
  Receive Date: 20200129
  Receipt Date: 20200129
  Transmission Date: 20200409
  Serious: No
  Sender: FDA-Public Use
  Company Number: US-EXELIXIS-CABO-19025082

PATIENT
  Sex: Female

DRUGS (1)
  1. CABOMETYX [Suspect]
     Active Substance: CABOZANTINIB S-MALATE
     Indication: RENAL CANCER
     Dosage: 20 MG, QD(AM WITHOUT FOOD
     Dates: start: 20191012

REACTIONS (3)
  - Blood magnesium decreased [Unknown]
  - Constipation [Recovering/Resolving]
  - Blood pressure increased [Recovering/Resolving]
